FAERS Safety Report 8107276-8 (Version None)
Quarter: 2012Q1

REPORT INFORMATION
  Report Type: 
  Country: None (occurrence: None)
  Receive Date: 20120202
  Receipt Date: 20120130
  Transmission Date: 20120608
  Serious: Yes (Other)
  Sender: FDA-Public Use
  Company Number: US-PFIZER INC-2012025487

PATIENT
  Sex: Male
  Weight: 84.354 kg

DRUGS (12)
  1. BENICAR [Concomitant]
     Dosage: 45 MG, DAILY
  2. WELCHOL [Concomitant]
     Dosage: 625 MG, 6X/DAY
  3. PANTOPRAZOLE [Concomitant]
     Dosage: 40 MG, DAILY
  4. COMBIVENT [Concomitant]
     Indication: DYSPNOEA
     Dosage: AS NEEDED
  5. SYMBICORT [Concomitant]
     Dosage: 160/4.5 UG, FOUR PUFFS DAILY
  6. DILTIAZEM [Concomitant]
     Dosage: 240 MG, UNK
  7. LIPITOR [Suspect]
     Dosage: 80 MG, DAILY
     Route: 048
  8. PLAVIX [Concomitant]
     Dosage: 75 MG, UNK
  9. LIPITOR [Suspect]
     Indication: BLOOD CHOLESTEROL INCREASED
     Dosage: UNK
  10. FUROSEMIDE [Concomitant]
     Dosage: UNK
  11. VESICARE [Concomitant]
     Dosage: UNK
  12. DOXYCYCLINE [Concomitant]
     Dosage: 100 MG, UNK

REACTIONS (4)
  - VASCULAR GRAFT [None]
  - CORONARY ARTERIAL STENT INSERTION [None]
  - STENT PLACEMENT [None]
  - CHRONIC OBSTRUCTIVE PULMONARY DISEASE [None]
